FAERS Safety Report 24110225 (Version 1)
Quarter: 2024Q3

REPORT INFORMATION
  Report Type: Spontaneous
  Country: GB (occurrence: GB)
  Receive Date: 20240718
  Receipt Date: 20240718
  Transmission Date: 20241016
  Serious: Yes (Hospitalization, Other)
  Sender: MYLAN
  Company Number: None

PATIENT
  Age: 41 Year
  Sex: Female

DRUGS (1)
  1. DOXYCYCLINE [Suspect]
     Active Substance: DOXYCYCLINE\DOXYCYCLINE HYCLATE
     Indication: Infected bite
     Dosage: QD (200MG INITIALLY FOLLOWED BY 100MG ONCE A DAY)
     Route: 065

REACTIONS (3)
  - Rash [Recovered/Resolved]
  - Arthralgia [Unknown]
  - Pruritus [Not Recovered/Not Resolved]
